FAERS Safety Report 7590969-9 (Version None)
Quarter: 2011Q3

REPORT INFORMATION
  Report Type: 
  Country: None (occurrence: None)
  Receive Date: 20110705
  Receipt Date: 20110629
  Transmission Date: 20111222
  Serious: Yes (Hospitalization)
  Sender: FDA-Public Use
  Company Number: PHHO2009US08862

PATIENT
  Sex: Male
  Weight: 82.6 kg

DRUGS (11)
  1. TASIGNA [Suspect]
     Dosage: 400 MG, QD
     Route: 048
     Dates: start: 20101106
  2. TASIGNA [Suspect]
     Dosage: 400 MG, QD
     Route: 048
     Dates: start: 20090731, end: 20101103
  3. ASPIRIN [Concomitant]
     Indication: CORONARY ARTERY DISEASE
     Dosage: UNK
     Dates: start: 20100901
  4. PRAVASTATIN SODIUM [Concomitant]
  5. PLAVIX [Concomitant]
     Indication: PROPHYLAXIS
     Dosage: UNK
     Dates: start: 20100905
  6. METOPROLOL TARTRATE [Concomitant]
     Indication: CHEST PAIN
     Dosage: UNK
     Dates: start: 20100902
  7. METOPROLOL TARTRATE [Concomitant]
     Indication: CORONARY ARTERY DISEASE
  8. TASIGNA [Suspect]
     Indication: CHRONIC MYELOID LEUKAEMIA
     Dosage: 400 MG, QD
     Route: 048
     Dates: start: 20080407, end: 20090713
  9. TASIGNA [Suspect]
     Dosage: NO TREATMENT
     Dates: start: 20090714, end: 20090730
  10. TASIGNA [Suspect]
     Dosage: NO TREATMENT
     Dates: start: 20101104, end: 20101105
  11. TAMOL [Concomitant]

REACTIONS (2)
  - ANGINA PECTORIS [None]
  - DYSPNOEA [None]
